FAERS Safety Report 7398100-X (Version None)
Quarter: 2011Q2

REPORT INFORMATION
  Report Type: 
  Country: None (occurrence: None)
  Receive Date: 20110406
  Receipt Date: 20110401
  Transmission Date: 20111010
  Serious: Yes (Hospitalization)
  Sender: FDA-Public Use
  Company Number: GB-AMGEN-KDC374645

PATIENT
  Age: 49 Year
  Weight: 80 kg

DRUGS (2)
  1. PANITUMUMAB [Suspect]
     Indication: COLORECTAL CANCER
     Dosage: 720 MG, UNK
     Route: 042
     Dates: start: 20091105
  2. IRINOTECAN [Concomitant]
     Dosage: 600 MG, UNK
     Route: 042
     Dates: start: 20091105

REACTIONS (2)
  - RASH [None]
  - NEUTROPENIA [None]
